FAERS Safety Report 11869876 (Version 3)
Quarter: 2016Q1

REPORT INFORMATION
  Report Type: Spontaneous
  Country: AU (occurrence: AU)
  Receive Date: 20151228
  Receipt Date: 20160119
  Transmission Date: 20160526
  Serious: Yes (Life-Threatening, Hospitalization, Other)
  Sender: FDA-Public Use
  Company Number: AU-ACCORD-035442

PATIENT
  Age: 32 Year
  Sex: Female

DRUGS (1)
  1. METHACCORD [Suspect]
     Active Substance: METHOTREXATE SODIUM
     Indication: ECTOPIC PREGNANCY
     Dosage: BATCH:15J28QM00395, 15J27QM00201, 15J07QM00318,15I22QM00492, 15H25QM00331,15H10QM00577, 15H07QM0029
     Route: 030
     Dates: start: 20151019

REACTIONS (2)
  - Off label use [Recovered/Resolved]
  - Drug ineffective [Recovered/Resolved]

NARRATIVE: CASE EVENT DATE: 201510
